FAERS Safety Report 23869881 (Version 1)
Quarter: 2024Q2

REPORT INFORMATION
  Report Type: Spontaneous
  Country: US (occurrence: US)
  Receive Date: 20240517
  Receipt Date: 20240517
  Transmission Date: 20240716
  Serious: No
  Sender: FDA-Public Use
  Company Number: US-SA-SAC20240510001335

PATIENT
  Age: 62 Year
  Sex: Male
  Weight: 90.7 kg

DRUGS (1)
  1. DUPIXENT [Suspect]
     Active Substance: DUPILUMAB
     Indication: Illness
     Dosage: 300 MG, QOW
     Route: 058
     Dates: start: 202402

REACTIONS (2)
  - Parosmia [Unknown]
  - Injection site pain [Unknown]

NARRATIVE: CASE EVENT DATE: 20240101
